FAERS Safety Report 11085713 (Version 2)
Quarter: 2015Q2

REPORT INFORMATION
  Report Type: Spontaneous
  Country: US (occurrence: US)
  Receive Date: 20150503
  Receipt Date: 20150525
  Transmission Date: 20150821
  Serious: Yes (Other)
  Sender: FDA-Public Use
  Company Number: US-JNJFOC-20120312883

PATIENT
  Age: 26 Year
  Sex: Female
  Weight: 91.17 kg

DRUGS (2)
  1. UNKNOWN MEDICATION [Suspect]
     Active Substance: UNSPECIFIED INGREDIENT
     Indication: MAJOR DEPRESSION
     Route: 048
     Dates: start: 20120127, end: 20120227
  2. ORTHO TRI CYCLEN [Suspect]
     Active Substance: ETHINYL ESTRADIOL\NORGESTIMATE
     Indication: CONTRACEPTION
     Route: 048
     Dates: start: 201110, end: 20120226

REACTIONS (4)
  - Vulvovaginal mycotic infection [Unknown]
  - Pregnancy on oral contraceptive [Unknown]
  - Exposure during pregnancy [Unknown]
  - Depression [Not Recovered/Not Resolved]

NARRATIVE: CASE EVENT DATE: 20111115
